FAERS Safety Report 4957309-2 (Version None)
Quarter: 2006Q1

REPORT INFORMATION
  Report Type: 
  Country: None (occurrence: None)
  Receive Date: 20060323
  Receipt Date: 20060306
  Transmission Date: 20060701
  Serious: Yes (Other)
  Sender: FDA-Public Use
  Company Number: US200603001365

PATIENT
  Sex: Female

DRUGS (4)
  1. HUMULIN N [Suspect]
  2. HUMULIN R [Suspect]
  3. HUMULIN N [Concomitant]
  4. HUMULIN R PEN [Concomitant]

REACTIONS (1)
  - MACULAR DEGENERATION [None]
